FAERS Safety Report 9468442 (Version 3)
Quarter: 2014Q1

REPORT INFORMATION
  Report Type: Spontaneous
  Country: US (occurrence: US)
  Receive Date: 20130821
  Receipt Date: 20140219
  Transmission Date: 20141002
  Serious: No
  Sender: FDA-Public Use
  Company Number: US-PFIZER INC-2013239005

PATIENT
  Age: 56 Year
  Sex: Male
  Weight: 87.98 kg

DRUGS (8)
  1. SUTENT [Suspect]
     Indication: METASTATIC RENAL CELL CARCINOMA
     Dosage: 50 MG, 1X/DAY
     Dates: start: 201308
  2. SUTENT [Suspect]
     Dosage: UNK, CYCLIC (EVERY OTHER DAY)
     Dates: start: 20130817
  3. SUTENT [Suspect]
     Dosage: 50 MG, CYCLIC DAILY, 4 WEEKS ON, TWO WEEKS OFF
  4. SUTENT [Suspect]
     Dosage: 50 MG, DAILY FOR 4 WEEKS ON AND 2 WEEKS OFF
     Dates: start: 20130808
  5. TRAMADOL [Concomitant]
     Indication: PAIN
     Dosage: 50 MG, AS NEEDED
  6. PROMETHAZINE [Concomitant]
     Indication: NAUSEA
     Dosage: 25 MG, AS NEEDED
     Route: 048
  7. TYLENOL [Concomitant]
     Dosage: UNK
  8. ADVIL [Concomitant]
     Dosage: UNK

REACTIONS (15)
  - Dysuria [Unknown]
  - Weight decreased [Recovering/Resolving]
  - Oral pain [Recovering/Resolving]
  - Headache [Not Recovered/Not Resolved]
  - Ageusia [Not Recovered/Not Resolved]
  - Decreased appetite [Not Recovered/Not Resolved]
  - Blood test abnormal [Recovering/Resolving]
  - Dyspnoea [Recovering/Resolving]
  - Dry mouth [Recovering/Resolving]
  - Dysgeusia [Unknown]
  - Diarrhoea [Unknown]
  - Fatigue [Unknown]
  - Blood glucose increased [Unknown]
  - Psoriasis [Unknown]
  - Feeling of body temperature change [Unknown]
